FAERS Safety Report 10076015 (Version 1)
Quarter: 2014Q2

REPORT INFORMATION
  Report Type: Spontaneous
  Country: US (occurrence: None)
  Receive Date: 20140410
  Receipt Date: 20140410
  Transmission Date: 20141212
  Serious: Yes (Other)
  Sender: FDA-Public Use
  Company Number: AEGR000301

PATIENT
  Age: 60 Year
  Sex: Female
  Weight: 79.4 kg

DRUGS (14)
  1. FISH OIL [Suspect]
     Indication: PRODUCT USED FOR UNKNOWN INDICATION
  2. ASPIRIN (ACETYLSALICYLIC ACID) [Concomitant]
  3. CALCIUM (CALCIUM) [Concomitant]
  4. CYCLOBENZAPRINE (CYCLOBENZAPRINE) [Concomitant]
  5. NITROGLYCERIN (GLYCERYL TRINITRATE) SPRAY [Concomitant]
  6. ATENOLOL (ATENOLOL) [Concomitant]
  7. COLESTIPOL HYDROCHLORIDE (COLESTIPOL HYDROCHLORIDE) [Concomitant]
  8. VITAMIN D3 (COLECALCIFEROL) [Concomitant]
  9. IBUPROFEN (IBUPROFEN) [Concomitant]
  10. DICLOFENAC (DICLOFENAC) [Concomitant]
  11. REMIFEMIN (CIMICIFUGA RACEMOSA EXTRACT) [Concomitant]
  12. OMEPRAZOLE (OMEPRAZOLE) [Concomitant]
  13. NITROSTAT (GLYCERYL TRINITRATE) [Concomitant]
  14. JUXTAPID [Suspect]
     Indication: TYPE IIA HYPERLIPIDAEMIA
     Route: 048
     Dates: start: 20140122, end: 20140327

REACTIONS (5)
  - Aspartate aminotransferase increased [None]
  - Alanine aminotransferase increased [None]
  - Hot flush [None]
  - Condition aggravated [None]
  - Abdominal discomfort [None]
